FAERS Safety Report 5147751-1 (Version None)
Quarter: 2006Q4

REPORT INFORMATION
  Report Type: 
  Country: None (occurrence: None)
  Receive Date: 20061106
  Receipt Date: 20061023
  Transmission Date: 20070319
  Serious: Yes (Death, Hospitalization)
  Sender: FDA-Public Use
  Company Number: 2006059238

PATIENT
  Age: 81 Year
  Sex: Female
  Weight: 61 kg

DRUGS (1)
  1. SUTENT [Suspect]
     Indication: GASTROINTESTINAL STROMAL TUMOUR
     Dosage: 50 MG (50 MG, 1 IN 1 D), ORAL
     Route: 048
     Dates: start: 20060419, end: 20060427

REACTIONS (6)
  - DISEASE PROGRESSION [None]
  - FALL [None]
  - GASTROINTESTINAL STROMAL TUMOUR [None]
  - HYPERCOAGULATION [None]
  - TUMOUR FLARE [None]
  - VASCULAR OCCLUSION [None]
